FAERS Safety Report 6665174-0 (Version None)
Quarter: 2010Q2

REPORT INFORMATION
  Report Type: 
  Country: None (occurrence: None)
  Receive Date: 20100402
  Receipt Date: 20100329
  Transmission Date: 20101027
  Serious: Yes (Other)
  Sender: FDA-Public Use
  Company Number: US-BRISTOL-MYERS SQUIBB COMPANY-15022213

PATIENT
  Age: 58 Year
  Sex: Female

DRUGS (3)
  1. ABILIFY [Suspect]
     Indication: MAJOR DEPRESSION
     Dosage: DOSE STARTED AT 2MG AND INCREASED TO 5MG ON 18/JAN/10
     Dates: start: 20100101
  2. BUSPAR [Suspect]
  3. PAXIL CR [Suspect]

REACTIONS (5)
  - CARDIAC DISORDER [None]
  - DEPRESSION [None]
  - DIABETES MELLITUS [None]
  - OEDEMA [None]
  - WEIGHT INCREASED [None]
